FAERS Safety Report 7900731-2 (Version None)
Quarter: 2011Q4

REPORT INFORMATION
  Report Type: 
  Country: None (occurrence: None)
  Receive Date: 20111108
  Receipt Date: 20111025
  Transmission Date: 20120403
  Serious: Yes (Other)
  Sender: FDA-Public Use
  Company Number: NL-ELI_LILLY_AND_COMPANY-NL201111000051

PATIENT
  Sex: Female
  Weight: 53 kg

DRUGS (9)
  1. FORTEO [Suspect]
     Dosage: UNK, QD
     Route: 058
     Dates: start: 20100701, end: 20110901
  2. COLECALCIFEROL [Concomitant]
     Indication: VITAMIN SUPPLEMENTATION
     Dosage: UNK UNK, QD
     Route: 048
  3. ATORVASTATIN [Concomitant]
     Indication: BLOOD CHOLESTEROL INCREASED
     Dosage: 20 MG, QD
     Route: 048
  4. ENALAPRIL MALEATE [Concomitant]
     Indication: HYPERTENSION
     Dosage: 10 MG, QD
     Route: 048
  5. ASPIRIN [Concomitant]
     Dosage: 80 MG, QD
     Route: 048
  6. CALCIUM CARBONATE W/COLECALCIFEROL [Concomitant]
     Indication: OSTEOPOROSIS
     Dosage: UNK, QD
     Route: 048
  7. FORTEO [Suspect]
     Indication: OSTEOPOROSIS
     Dosage: UNK, QD
     Route: 058
     Dates: start: 20100129, end: 20100504
  8. DIPYRIDAMOL [Concomitant]
     Indication: CEREBROVASCULAR ACCIDENT
     Dosage: 400 MG, QD
     Route: 048
  9. ACETAMINOPHEN [Concomitant]
     Indication: PAIN
     Dosage: 500 MG, PRN
     Route: 048

REACTIONS (6)
  - NOCTURIA [None]
  - EYE DISORDER [None]
  - MYALGIA [None]
  - GLAUCOMA [None]
  - FATIGUE [None]
  - DYSPNOEA [None]
